FAERS Safety Report 9707012 (Version 1)
Quarter: 2013Q4

REPORT INFORMATION
  Report Type: Spontaneous
  Country: US (occurrence: US)
  Receive Date: 20131125
  Receipt Date: 20131125
  Transmission Date: 20140711
  Serious: No
  Sender: FDA-Public Use
  Company Number: US-PFIZER INC-2013335875

PATIENT
  Age: 47 Year
  Sex: Male
  Weight: 90.7 kg

DRUGS (3)
  1. CHANTIX [Suspect]
     Indication: SMOKING CESSATION THERAPY
     Dosage: UNK
     Dates: start: 201311, end: 20131119
  2. KLONOPIN [Suspect]
     Indication: ANXIETY
     Dosage: 1 MG, UNK
  3. METHADONE [Concomitant]
     Indication: PAIN
     Dosage: UNK

REACTIONS (2)
  - Anger [Unknown]
  - Anxiety [Unknown]
